FAERS Safety Report 26144699 (Version 1)
Quarter: 2025Q4

REPORT INFORMATION
  Report Type: Spontaneous
  Country: US (occurrence: US)
  Receive Date: 20251211
  Receipt Date: 20251211
  Transmission Date: 20260117
  Serious: Yes (Life-Threatening, Other)
  Sender: CB FLEET
  Company Number: US-PRESTIGE-202512-US-003891

PATIENT
  Age: 64 Year
  Sex: Male

DRUGS (1)
  1. BENZOCAINE (BENZOCAINE) [Suspect]
     Active Substance: BENZOCAINE
     Indication: Haemorrhoids
     Dosage: TOPICAL BENZOCAINE 20 % HEMORRHOIDAL OINTMENT WHICH WERE ADMINISTERED?AT THE RECTAL SITE

REACTIONS (2)
  - Methaemoglobinaemia [Recovered/Resolved]
  - Cyanosis [Recovered/Resolved]
